FAERS Safety Report 7557491-7 (Version None)
Quarter: 2011Q2

REPORT INFORMATION
  Report Type: 
  Country: None (occurrence: None)
  Receive Date: 20110610
  Receipt Date: 20110603
  Transmission Date: 20111010
  Serious: Yes (Death, Hospitalization)
  Sender: FDA-Public Use
  Company Number: ACO_22767_2011

PATIENT
  Age: 59 Year
  Sex: Female

DRUGS (8)
  1. CARBOPLATIN [Concomitant]
  2. AVASTIN (SIMVASTATIN) [Concomitant]
  3. LEXAPRO [Concomitant]
  4. ALIMTA [Concomitant]
  5. AMPYRA [Suspect]
     Indication: PRODUCT USED FOR UNKNOWN INDICATION
     Dosage: 10 MG, Q 12 HRS, ORAL
     Route: 048
     Dates: start: 20100512, end: 20100825
  6. NEXIUM [Concomitant]
  7. MULTIVITAMINS (ASCORBIC ACID, ERGOCALCIFEROL, FOLIC ACID, NICOTINAMIDE [Concomitant]
  8. MALARONE [Concomitant]

REACTIONS (1)
  - LUNG ADENOCARCINOMA [None]
